FAERS Safety Report 4721424-9 (Version None)
Quarter: 2005Q3

REPORT INFORMATION
  Report Type: 
  Country: None (occurrence: None)
  Receive Date: 20050721
  Receipt Date: 20040826
  Transmission Date: 20060218
  Serious: No
  Sender: FDA-Public Use
  Company Number: US-BRISTOL-MYERS SQUIBB COMPANY-12684387

PATIENT
  Age: 60 Year
  Sex: Female
  Weight: 54 kg

DRUGS (5)
  1. COUMADIN [Suspect]
     Indication: ATRIAL SEPTAL DEFECT
     Route: 048
     Dates: start: 19950101
  2. COUMADIN [Interacting]
     Indication: CEREBROVASCULAR ACCIDENT
     Route: 048
     Dates: start: 19950101
  3. DIETHYLTOLUAMIDE [Interacting]
     Dates: start: 20040101
  4. CYANOACRYLATE [Interacting]
  5. PREMARIN [Concomitant]

REACTIONS (4)
  - DRUG INTERACTION [None]
  - ECCHYMOSIS [None]
  - EXPOSURE TO TOXIC AGENT [None]
  - INTERNATIONAL NORMALISED RATIO ABNORMAL [None]
